FAERS Safety Report 10658975 (Version 2)
Quarter: 2015Q3

REPORT INFORMATION
  Report Type: Spontaneous
  Country: US (occurrence: US)
  Receive Date: 20141217
  Receipt Date: 20150817
  Transmission Date: 20151125
  Serious: Yes (Other)
  Sender: FDA-Public Use
  Company Number: US-CELGENEUS-163-20785-14084483

PATIENT
  Sex: Male
  Weight: 79.4 kg

DRUGS (2)
  1. THALOMID [Suspect]
     Active Substance: THALIDOMIDE
     Indication: BRAIN NEOPLASM MALIGNANT
     Dosage: 200 MILLIGRAM
     Route: 048
     Dates: start: 20140617, end: 2014
  2. THALOMID [Suspect]
     Active Substance: THALIDOMIDE
     Indication: ANAPLASTIC OLIGODENDROGLIOMA

REACTIONS (1)
  - Hypersensitivity [Unknown]

NARRATIVE: CASE EVENT DATE: 2014
